FAERS Safety Report 6216170-9 (Version None)
Quarter: 2009Q2

REPORT INFORMATION
  Report Type: 
  Country: None (occurrence: None)
  Receive Date: 20090605
  Receipt Date: 20090601
  Transmission Date: 20091009
  Serious: Yes (Hospitalization)
  Sender: FDA-Public Use
  Company Number: US-BAYER-200910463BCC

PATIENT
  Sex: Female
  Weight: 50 kg

DRUGS (5)
  1. ASPIRIN [Suspect]
     Indication: ISCHAEMIC HEART DISEASE PROPHYLAXIS
     Dosage: TOTAL DAILY DOSE: 325 MG  UNIT DOSE: 325 MG
     Dates: start: 20050101, end: 20060101
  2. ALEVE [Suspect]
     Indication: ARTHRALGIA
     Dosage: BOTTEL COUNT UNKNOWN
  3. VASOTEC [Concomitant]
  4. LABETALOL HCL [Concomitant]
  5. HYDROCHLOROTHIAZIDE [Concomitant]

REACTIONS (1)
  - RECTAL HAEMORRHAGE [None]
